FAERS Safety Report 21398802 (Version 1)
Quarter: 2022Q4

REPORT INFORMATION
  Report Type: Spontaneous
  Country: CA (occurrence: CA)
  Receive Date: 20221001
  Receipt Date: 20221001
  Transmission Date: 20230112
  Serious: Yes (Hospitalization, Other)
  Sender: FDA-Public Use
  Company Number: CA-AUROBINDO-AUR-APL-2022-039586

PATIENT
  Age: 43 Year
  Sex: Female

DRUGS (11)
  1. RISEDRONATE SODIUM [Suspect]
     Active Substance: RISEDRONATE SODIUM
     Indication: Product used for unknown indication
     Dosage: UNK
     Route: 065
  2. VITAMIN D3 [Suspect]
     Active Substance: CHOLECALCIFEROL
     Indication: Product used for unknown indication
     Dosage: UNK
     Route: 065
  3. ACRIVASTINE [Concomitant]
     Active Substance: ACRIVASTINE
     Indication: Product used for unknown indication
     Dosage: UNK
     Route: 065
  4. CROMOLYN [Concomitant]
     Active Substance: CROMOLYN
     Indication: Product used for unknown indication
     Dosage: UNK
     Route: 065
  5. LORATADINE [Concomitant]
     Active Substance: LORATADINE
     Indication: Product used for unknown indication
     Dosage: UNK
     Route: 065
  6. LORAZEPAM [Concomitant]
     Active Substance: LORAZEPAM
     Indication: Product used for unknown indication
     Dosage: UNK
     Route: 065
  7. NALTREXONE HYDROCHLORIDE [Concomitant]
     Active Substance: NALTREXONE HYDROCHLORIDE
     Indication: Product used for unknown indication
     Dosage: UNK
     Route: 065
  8. RANITIDINE [Concomitant]
     Active Substance: RANITIDINE
     Indication: Product used for unknown indication
     Dosage: 150 MILLIGRAM, TWO TIMES A DAY
     Route: 065
  9. RUPATADINE [Concomitant]
     Active Substance: RUPATADINE
     Indication: Product used for unknown indication
     Dosage: 4 DOSAGE FORM, ONCE A DAY
     Route: 065
  10. RUPATADINE [Concomitant]
     Active Substance: RUPATADINE
     Dosage: 40 MG EVERY DAY
     Route: 065
  11. SINGULAIR [Suspect]
     Active Substance: MONTELUKAST SODIUM
     Indication: Product used for unknown indication
     Dosage: UNKNOWN
     Route: 065

REACTIONS (31)
  - Abdominal discomfort [Unknown]
  - Abnormal loss of weight [Unknown]
  - Affective disorder [Unknown]
  - Amnesia [Unknown]
  - Anal incontinence [Unknown]
  - Angioedema [Unknown]
  - Cerebral disorder [Unknown]
  - Condition aggravated [Unknown]
  - Constipation [Unknown]
  - Diarrhoea [Unknown]
  - Dizziness [Unknown]
  - Drug intolerance [Unknown]
  - Dyspnoea [Unknown]
  - Eye pruritus [Unknown]
  - Flushing [Unknown]
  - Frustration tolerance decreased [Unknown]
  - Hypersensitivity [Unknown]
  - Infection [Unknown]
  - Mastocytosis [Unknown]
  - Mental disorder [Unknown]
  - Night sweats [Unknown]
  - Osteonecrosis of jaw [Unknown]
  - Palpitations [Unknown]
  - Panic attack [Unknown]
  - Quality of life decreased [Unknown]
  - Sinusitis [Unknown]
  - Suicidal ideation [Unknown]
  - Throat irritation [Unknown]
  - Urine analysis abnormal [Unknown]
  - Urticaria [Unknown]
  - Sleep disorder [Unknown]
